FAERS Safety Report 5387866-6 (Version None)
Quarter: 2007Q3

REPORT INFORMATION
  Report Type: 
  Country: None (occurrence: None)
  Receive Date: 20070716
  Receipt Date: 20060804
  Transmission Date: 20080115
  Serious: No
  Sender: FDA-Public Use
  Company Number: A0614990A

PATIENT
  Age: 35 Year
  Sex: Female

DRUGS (1)
  1. TARGET NICOTINE GUM 4MG, MINT [Suspect]
     Dates: start: 20060803, end: 20060803

REACTIONS (2)
  - DIZZINESS [None]
  - MALAISE [None]
